FAERS Safety Report 24674598 (Version 1)
Quarter: 2024Q4

REPORT INFORMATION
  Report Type: Spontaneous
  Country: US (occurrence: US)
  Receive Date: 20241128
  Receipt Date: 20241128
  Transmission Date: 20250114
  Serious: Yes (Hospitalization)
  Sender: TEVA
  Company Number: US-TEVA-VS-3267005

PATIENT
  Age: 24 Year
  Sex: Female

DRUGS (12)
  1. NIFEDIPINE [Suspect]
     Active Substance: NIFEDIPINE
     Indication: Pre-eclampsia
     Route: 048
  2. MISOPROSTOL [Suspect]
     Active Substance: MISOPROSTOL
     Indication: Labour induction
     Route: 065
  3. LIDOCAINE [Suspect]
     Active Substance: LIDOCAINE
     Indication: Epidural analgesia
     Route: 008
  4. OXYTOCIN [Suspect]
     Active Substance: OXYTOCIN
     Indication: Labour induction
     Route: 065
  5. SODIUM BICARBONATE [Suspect]
     Active Substance: SODIUM BICARBONATE
     Indication: Product used for unknown indication
     Route: 065
  6. HYDRALAZINE [Suspect]
     Active Substance: HYDRALAZINE HYDROCHLORIDE
     Indication: Pre-eclampsia
     Route: 042
  7. BUPIVACAINE [Suspect]
     Active Substance: BUPIVACAINE
     Indication: Epidural analgesia
     Route: 008
  8. LORAZEPAM [Suspect]
     Active Substance: LORAZEPAM
     Indication: Eclampsia
     Route: 042
  9. LABETALOL [Suspect]
     Active Substance: LABETALOL
     Indication: Pre-eclampsia
     Route: 042
  10. FENTANYL [Suspect]
     Active Substance: FENTANYL
     Indication: Epidural analgesia
     Dosage: 2 MICROG/ML
     Route: 008
  11. MAGNESIUM [Suspect]
     Active Substance: MAGNESIUM
     Indication: Seizure prophylaxis
     Route: 042
  12. MAGNESIUM [Suspect]
     Active Substance: MAGNESIUM
     Indication: Seizure prophylaxis
     Dosage: 2G/H
     Route: 050

REACTIONS (8)
  - Toxicity to various agents [Unknown]
  - Maternal exposure during pregnancy [Unknown]
  - Areflexia [Recovered/Resolved]
  - Eclampsia [Recovered/Resolved]
  - Hypermagnesaemia [Not Recovered/Not Resolved]
  - Posterior reversible encephalopathy syndrome [Recovered/Resolved]
  - Normal newborn [Unknown]
  - Somnolence [Recovered/Resolved]
